FAERS Safety Report 14108323 (Version 2)
Quarter: 2017Q4

REPORT INFORMATION
  Report Type: Report from Study
  Country: FI (occurrence: FI)
  Receive Date: 20171019
  Receipt Date: 20171026
  Transmission Date: 20180321
  Serious: Yes (Hospitalization)
  Sender: FDA-Public Use
  Company Number: FI-MYLANLABS-2017M1066009

PATIENT
  Age: 34 Year
  Sex: Female

DRUGS (4)
  1. LEPONEX [Suspect]
     Active Substance: CLOZAPINE
     Indication: SCHIZOPHRENIA
     Dosage: UNK
     Dates: start: 20090924, end: 2017
  2. LEPONEX [Suspect]
     Active Substance: CLOZAPINE
     Dosage: 150 MG, QD
     Dates: start: 2017
  3. ZOLOFT [Concomitant]
     Active Substance: SERTRALINE HYDROCHLORIDE
     Indication: PRODUCT USED FOR UNKNOWN INDICATION
     Dosage: UNK
  4. LEPONEX [Suspect]
     Active Substance: CLOZAPINE
     Dosage: UNK
     Dates: start: 20171005

REACTIONS (4)
  - White blood cell count decreased [Not Recovered/Not Resolved]
  - Therapy cessation [Recovered/Resolved]
  - Neutropenia [Not Recovered/Not Resolved]
  - Mental impairment [Recovering/Resolving]

NARRATIVE: CASE EVENT DATE: 20091012
